FAERS Safety Report 4871592-3 (Version None)
Quarter: 2006Q1

REPORT INFORMATION
  Report Type: 
  Country: None (occurrence: None)
  Receive Date: 20060104
  Receipt Date: 20051223
  Transmission Date: 20060701
  Serious: Yes (Death, Life-Threatening, Hospitalization, Other)
  Sender: FDA-Public Use
  Company Number: NSADSS2002004250

PATIENT
  Sex: Male

DRUGS (10)
  1. REMICADE [Suspect]
     Route: 041
     Dates: start: 20010714
  2. REMICADE [Suspect]
     Route: 041
     Dates: start: 20010714
  3. REMICADE [Suspect]
     Route: 041
     Dates: start: 20010714
  4. METHOTREXATE [Concomitant]
     Route: 065
     Dates: start: 20010301
  5. FOLIC ACID [Concomitant]
     Route: 065
  6. MEDROL [Concomitant]
     Route: 065
  7. LASIX [Concomitant]
     Route: 065
  8. LOPRESSOR [Concomitant]
     Route: 065
  9. ASPIRIN [Concomitant]
     Route: 065
  10. SIMVASTATIN [Concomitant]
     Route: 065

REACTIONS (11)
  - ARTERIAL RUPTURE [None]
  - BRONCHOPNEUMONIA [None]
  - CHEST PAIN [None]
  - CORONARY ARTERY DISEASE [None]
  - DYSPNOEA EXERTIONAL [None]
  - HAEMATOMA [None]
  - HAEMORRHAGE [None]
  - MYOCARDIAL ISCHAEMIA [None]
  - OEDEMA PERIPHERAL [None]
  - RESPIRATORY FAILURE [None]
  - SEPSIS [None]
